FAERS Safety Report 4543220-8 (Version None)
Quarter: 2005Q1

REPORT INFORMATION
  Report Type: 
  Country: None (occurrence: None)
  Receive Date: 20050103
  Receipt Date: 20041223
  Transmission Date: 20050727
  Serious: Yes (Hospitalization)
  Sender: FDA-Public Use
  Company Number: US-BRISTOL-MYERS SQUIBB COMPANY-12805479

PATIENT
  Age: 53 Year
  Sex: Female

DRUGS (7)
  1. EXCEDRIN (MIGRAINE) [Suspect]
  2. TYLENOL [Suspect]
     Indication: TENDONITIS
     Dosage: MAXIMUM 1300MG DAILY ^OFF AND ON^ ALL SUMMER
     Dates: start: 20040601
  3. CHLORAZEPAM [Concomitant]
  4. ENALAPRIL [Concomitant]
  5. HYDROCHLOROTHIAZIDE [Concomitant]
  6. ATENOLOL [Concomitant]
  7. REMERON [Concomitant]

REACTIONS (4)
  - BREAST MICROCALCIFICATION [None]
  - CLOSTRIDIAL INFECTION [None]
  - FAECES DISCOLOURED [None]
  - MENTAL DISORDER [None]
